FAERS Safety Report 6423087-3 (Version None)
Quarter: 2009Q4

REPORT INFORMATION
  Report Type: 
  Country: None (occurrence: None)
  Receive Date: 20091102
  Receipt Date: 20091021
  Transmission Date: 20100525
  Serious: Yes (Hospitalization)
  Sender: FDA-Public Use
  Company Number: US-JNJFOC-20091009126

PATIENT
  Age: 77 Year
  Sex: Female
  Weight: 52.7 kg

DRUGS (4)
  1. SIMPONI [Suspect]
     Indication: RHEUMATOID ARTHRITIS
     Route: 058
  2. PREDNISONE [Concomitant]
  3. IBUPROFEN [Concomitant]
  4. IBUPROFEN [Concomitant]

REACTIONS (2)
  - IRON DEFICIENCY ANAEMIA [None]
  - STRESS CARDIOMYOPATHY [None]
